FAERS Safety Report 4440107-6 (Version None)
Quarter: 2004Q3

REPORT INFORMATION
  Report Type: 
  Country: None (occurrence: None)
  Receive Date: 20040831
  Receipt Date: 20040720
  Transmission Date: 20050211
  Serious: No
  Sender: FDA-Public Use
  Company Number: 702159

PATIENT
  Sex: 0

DRUGS (2)
  1. AMEVIVE [Suspect]
     Indication: PSORIASIS
  2. ENBREL [Concomitant]

REACTIONS (1)
  - PARAESTHESIA [None]
